FAERS Safety Report 5008962-9 (Version None)
Quarter: 2006Q2

REPORT INFORMATION
  Report Type: 
  Country: None (occurrence: None)
  Receive Date: 20060523
  Receipt Date: 20060516
  Transmission Date: 20061013
  Serious: Yes (Hospitalization)
  Sender: FDA-Public Use
  Company Number: 2006AC00963

PATIENT
  Age: 60 Year
  Sex: Female

DRUGS (2)
  1. TENORMIN [Suspect]
     Route: 048
     Dates: start: 20050802, end: 20050811
  2. APOCARD [Interacting]
     Route: 048
     Dates: start: 20050307, end: 20050811

REACTIONS (2)
  - BRADYCARDIA [None]
  - DRUG INTERACTION [None]
